FAERS Safety Report 23549148 (Version 2)
Quarter: 2024Q1

REPORT INFORMATION
  Report Type: Spontaneous
  Country: US (occurrence: US)
  Receive Date: 20240221
  Receipt Date: 20240226
  Transmission Date: 20240410
  Serious: No
  Sender: FDA-Public Use
  Company Number: US-PFIZER INC-PV202400020244

PATIENT
  Age: 74 Year
  Sex: Female

DRUGS (2)
  1. IBRANCE [Suspect]
     Active Substance: PALBOCICLIB
     Indication: Hormone receptor positive breast cancer
     Dosage: 1 TABLET EVERY DAY FOR 21 DAYS THEN OFF 7 DAYS. TAKE WITH FOOD
     Route: 048
  2. IBRANCE [Suspect]
     Active Substance: PALBOCICLIB
     Dosage: 1 TABLET EVERY OTHER DAY FOR 5 DAYS
     Route: 048

REACTIONS (3)
  - Neoplasm progression [Unknown]
  - Anaemia [Unknown]
  - Off label use [Unknown]
